FAERS Safety Report 6359837-4 (Version None)
Quarter: 2009Q3

REPORT INFORMATION
  Report Type: 
  Country: None (occurrence: None)
  Receive Date: 20090917
  Receipt Date: 20090914
  Transmission Date: 20100115
  Serious: Yes (Death, Life-Threatening, Other)
  Sender: FDA-Public Use
  Company Number: A0807724A

PATIENT
  Age: 45 Year
  Sex: Female

DRUGS (2)
  1. ARIXTRA [Suspect]
     Indication: DEEP VEIN THROMBOSIS
     Route: 058
  2. WARFARIN SODIUM [Concomitant]

REACTIONS (2)
  - DEATH [None]
  - PULMONARY EMBOLISM [None]
